FAERS Safety Report 10767354 (Version 3)
Quarter: 2015Q2

REPORT INFORMATION
  Report Type: Report from Study
  Country: BG (occurrence: BG)
  Receive Date: 20150205
  Receipt Date: 20150529
  Transmission Date: 20150821
  Serious: Yes (Hospitalization, Disabling)
  Sender: FDA-Public Use
  Company Number: BG-AMGEN-2014-1500

PATIENT
  Age: 66 Year
  Sex: Female
  Weight: 64.1 kg

DRUGS (9)
  1. CARFILZOMIB [Suspect]
     Active Substance: CARFILZOMIB
     Indication: PLASMA CELL MYELOMA
     Dosage: FREQ. TEXT: DAYS 1, 2
     Route: 042
     Dates: start: 20131112, end: 20131113
  2. CARFILZOMIB [Suspect]
     Active Substance: CARFILZOMIB
     Dosage: FREQUENCY: 6 EVERY 36 DAYS; FREQ. TEXT: DAYS 8, 9, 22, 23, 29, AND 30
     Route: 042
     Dates: start: 20131119, end: 20131211
  3. PREDNISONE. [Suspect]
     Active Substance: PREDNISONE
     Indication: PLASMA CELL MYELOMA
     Dosage: FREQUENCY: 4 EVERY 42 DAYS; FREQ. TEXT: DAYS 1-4, EVERY 42 DAYS
     Route: 048
     Dates: start: 20131112
  4. PREDNISONE. [Suspect]
     Active Substance: PREDNISONE
     Dosage: UNK
     Route: 048
  5. PREDNISONE. [Suspect]
     Active Substance: PREDNISONE
     Dosage: UNK
     Route: 048
  6. ACICLOVIR [Concomitant]
     Active Substance: ACYCLOVIR
     Indication: ANTIVIRAL TREATMENT
     Route: 048
     Dates: start: 20131112
  7. CARFILZOMIB [Suspect]
     Active Substance: CARFILZOMIB
     Dosage: FREQUENCY: 8 EVERY 42 DAYS; FREQ. TEXT: DAYS 1,2,8,9,22,23,29,AND 30 EVERY42 DAY
     Route: 042
     Dates: start: 20140723
  8. CARFILZOMIB [Suspect]
     Active Substance: CARFILZOMIB
     Dosage: FREQUENCY: 8 EVERY 42 DAYS; FREQ. TEXT: DAYS 1,2,8,9,22,23,29,AND 30 EVERY42 DAY
     Route: 042
     Dates: start: 20131224, end: 20140702
  9. MELPHALAN [Suspect]
     Active Substance: MELPHALAN
     Indication: PLASMA CELL MYELOMA
     Dosage: FREQUENCY: 4 EVERY 42 DAYS; FREQ. TEXT: DAYS 1-4, EVERY 42 DAYS
     Route: 048
     Dates: start: 20131112

REACTIONS (1)
  - Ear infection [Recovered/Resolved]

NARRATIVE: CASE EVENT DATE: 20140706
